FAERS Safety Report 15205439 (Version 1)
Quarter: 2018Q3

REPORT INFORMATION
  Report Type: Spontaneous
  Country: US (occurrence: US)
  Receive Date: 20180628
  Receipt Date: 20180628
  Transmission Date: 20181010
  Serious: No
  Sender: FDA-Public Use
  Company Number: None

PATIENT

DRUGS (1)
  1. REMICADE [Suspect]
     Active Substance: INFLIXIMAB
     Dates: start: 20180528, end: 20180628

REACTIONS (2)
  - Treatment failure [None]
  - Prescribed overdose [None]

NARRATIVE: CASE EVENT DATE: 20180628
